FAERS Safety Report 10579904 (Version 1)
Quarter: 2014Q4

REPORT INFORMATION
  Report Type: Spontaneous
  Country: US (occurrence: US)
  Receive Date: 20141112
  Receipt Date: 20141112
  Transmission Date: 20150529
  Serious: No
  Sender: FDA-Public Use
  Company Number: US-BAYER-2014-166401

PATIENT
  Age: 61 Year
  Sex: Male
  Weight: 145.13 kg

DRUGS (3)
  1. ALEVE PM [Suspect]
     Active Substance: DIPHENHYDRAMINE HYDROCHLORIDE\NAPROXEN SODIUM
     Dosage: 2 DF, QD
     Route: 048
     Dates: start: 201410
  2. OXYCODONE [Concomitant]
     Active Substance: OXYCODONE
     Dosage: 1 DF, TID
     Route: 048
  3. OXYCONTIN [Concomitant]
     Active Substance: OXYCODONE HYDROCHLORIDE
     Dosage: UNK UNK, UNK

REACTIONS (2)
  - Therapeutic response unexpected [Not Recovered/Not Resolved]
  - Incorrect drug administration duration [Unknown]

NARRATIVE: CASE EVENT DATE: 201410
